FAERS Safety Report 7049079-1 (Version None)
Quarter: 2010Q4

REPORT INFORMATION
  Report Type: 
  Country: None (occurrence: None)
  Receive Date: 20101018
  Receipt Date: 20101007
  Transmission Date: 20110411
  Serious: Yes (Other)
  Sender: FDA-Public Use
  Company Number: CA-JNJFOC-20101002718

PATIENT
  Sex: Female
  Weight: 82 kg

DRUGS (6)
  1. REMICADE [Suspect]
     Indication: RHEUMATOID ARTHRITIS
     Route: 042
  2. ZOPLICONE [Concomitant]
  3. LORAZEPAM [Concomitant]
  4. HYDROXYCHLOROQUINE [Concomitant]
  5. ALENDRONATE SODIUM [Concomitant]
  6. PREDNISONE [Concomitant]

REACTIONS (1)
  - BUNION [None]
